FAERS Safety Report 20097781 (Version 1)
Quarter: 2021Q4

REPORT INFORMATION
  Report Type: Spontaneous
  Country: US (occurrence: None)
  Receive Date: 20211119
  Receipt Date: 20211119
  Transmission Date: 20220303
  Serious: Yes (Life-Threatening, Disabling, Other)
  Sender: FDA-Public Use
  Company Number: None

PATIENT
  Age: 29 Year
  Weight: 52.16 kg

DRUGS (2)
  1. PARAGARD T 380A [Suspect]
     Active Substance: COPPER
  2. B12 + methylfolate [Concomitant]

REACTIONS (25)
  - Presyncope [None]
  - Syncope [None]
  - Fatigue [None]
  - Hypersomnia [None]
  - Skin fissures [None]
  - Trichorrhexis [None]
  - Alopecia [None]
  - Dyspepsia [None]
  - Diarrhoea [None]
  - Nausea [None]
  - Vomiting [None]
  - Malnutrition [None]
  - Depression [None]
  - Feeling abnormal [None]
  - Panic attack [None]
  - Arthralgia [None]
  - Coeliac disease [None]
  - Gluten sensitivity [None]
  - Dermatitis [None]
  - Weight decreased [None]
  - Dysmenorrhoea [None]
  - Jaundice [None]
  - Sympathetic nerve injury [None]
  - Autonomic neuropathy [None]
  - Near death experience [None]

NARRATIVE: CASE EVENT DATE: 20190612
